FAERS Safety Report 4391495-0 (Version None)
Quarter: 2004Q3

REPORT INFORMATION
  Report Type: 
  Country: None (occurrence: None)
  Receive Date: 20040701
  Receipt Date: 20040621
  Transmission Date: 20050211
  Serious: Yes (Death)
  Sender: FDA-Public Use
  Company Number: 2004-DE-03381GD

PATIENT
  Age: 40 Year
  Sex: Male

DRUGS (7)
  1. METHOTREXATE [Suspect]
     Indication: METASTASES TO MENINGES
     Dosage: 12 MG (SINGLE DOSE), IT ; IV
     Route: 037
  2. METHOTREXATE [Suspect]
     Indication: PROPHYLAXIS
     Dosage: 12 MG (SINGLE DOSE), IT ; IV
     Route: 037
  3. CYCLOPHOSPHAMIDE [Concomitant]
  4. MESNA [Concomitant]
  5. VINCRISTINE [Concomitant]
  6. DOXORUBICIN HCL [Concomitant]
  7. DEXAMETHASONE [Concomitant]

REACTIONS (18)
  - AGITATION [None]
  - AREFLEXIA [None]
  - BACK PAIN [None]
  - BLOOD CREATININE INCREASED [None]
  - DIAPHRAGMATIC PARALYSIS [None]
  - DRUG LEVEL INCREASED [None]
  - ENCEPHALITIS [None]
  - ENCEPHALOPATHY [None]
  - GENERAL PHYSICAL HEALTH DETERIORATION [None]
  - HICCUPS [None]
  - NERVOUS SYSTEM DISORDER [None]
  - NYSTAGMUS [None]
  - PAIN OF SKIN [None]
  - PARALYSIS [None]
  - RENAL FAILURE [None]
  - SOMNOLENCE [None]
  - SPEECH DISORDER [None]
  - URINARY RETENTION [None]
